FAERS Safety Report 7926330-4 (Version None)
Quarter: 2011Q4

REPORT INFORMATION
  Report Type: 
  Country: None (occurrence: None)
  Receive Date: 20111118
  Receipt Date: 20111111
  Transmission Date: 20120403
  Serious: No
  Sender: FDA-Public Use
  Company Number: US-BIOGENIDEC-2011BI024495

PATIENT
  Age: 59 Year
  Sex: Female

DRUGS (3)
  1. TYSABRI [Suspect]
     Indication: MULTIPLE SCLEROSIS
     Route: 042
     Dates: start: 20110627
  2. BETASERON [Concomitant]
     Indication: MULTIPLE SCLEROSIS
  3. DITROPAN [Concomitant]
     Indication: URINARY INCONTINENCE

REACTIONS (2)
  - PARAESTHESIA [None]
  - PRURITUS [None]
